FAERS Safety Report 17692273 (Version 1)
Quarter: 2020Q2

REPORT INFORMATION
  Report Type: Spontaneous
  Country: US (occurrence: US)
  Receive Date: 20200422
  Receipt Date: 20200422
  Transmission Date: 20200714
  Serious: Yes (Hospitalization)
  Sender: FDA-Public Use
  Company Number: US-PFIZER INC-2020157047

PATIENT
  Sex: Female

DRUGS (1)
  1. PRISTIQ EXTENDED-RELEASE [Suspect]
     Active Substance: DESVENLAFAXINE SUCCINATE
     Dosage: 75 MG, DAILY (SHE TAKES ONE AND A HALF TABLETS (75MG) BY MOUTH DAILY)
     Route: 048

REACTIONS (3)
  - Withdrawal syndrome [Unknown]
  - Off label use [Unknown]
  - Wrong technique in product usage process [Unknown]
